FAERS Safety Report 6183858-8 (Version None)
Quarter: 2009Q2

REPORT INFORMATION
  Report Type: 
  Country: None (occurrence: None)
  Receive Date: 20090508
  Receipt Date: 20090428
  Transmission Date: 20091009
  Serious: Yes (Hospitalization)
  Sender: FDA-Public Use
  Company Number: ES-PFIZER INC-2009205310

PATIENT
  Age: 65 Year

DRUGS (11)
  1. SUNITINIB MALATE [Suspect]
     Indication: GASTRIC CANCER
     Dosage: 37.5 MG, 1X/DAY
     Route: 048
     Dates: start: 20090324
  2. CISPLATIN [Suspect]
     Indication: GASTRIC CANCER
     Dosage: 135 MG, CYCLIC
     Dates: start: 20090324
  3. FLUOROURACIL [Suspect]
     Indication: GASTRIC CANCER
     Dosage: 6760 MG, UNK
     Dates: start: 20090324
  4. FORTECORTIN [Concomitant]
     Dosage: UNK
     Route: 048
  5. BUSCAPINA [Concomitant]
     Dosage: UNK
     Route: 048
  6. LORAZEPAM [Concomitant]
     Dosage: UNK
     Route: 048
  7. OMEPRAZOL [Concomitant]
     Dosage: UNK
     Route: 048
  8. CLOPIDOGREL [Concomitant]
     Dosage: UNK
     Route: 048
  9. EMULIQUEN LAXANTE [Concomitant]
     Dosage: UNK
     Route: 048
  10. X-PREP [Concomitant]
     Dosage: UNK
     Route: 048
  11. PRIMPERAN [Concomitant]
     Dosage: UNK
     Route: 048

REACTIONS (2)
  - ANAEMIA [None]
  - STENT OCCLUSION [None]
